FAERS Safety Report 14933219 (Version 2)
Quarter: 2018Q2

REPORT INFORMATION
  Report Type: Spontaneous
  Country: TR (occurrence: TR)
  Receive Date: 20180524
  Receipt Date: 20180608
  Transmission Date: 20180711
  Serious: Yes (Other)
  Sender: FDA-Public Use
  Company Number: PHHY2018TR003729

PATIENT
  Age: 43 Year
  Sex: Female
  Weight: 47 kg

DRUGS (3)
  1. FINGYA [Suspect]
     Active Substance: FINGOLIMOD
     Indication: MULTIPLE SCLEROSIS
     Dosage: 0.5 MG, QD
     Route: 048
     Dates: start: 20150227, end: 20180531
  2. FLUOXETINE [Concomitant]
     Active Substance: FLUOXETINE HYDROCHLORIDE
     Indication: DEPRESSION
     Dosage: 20 MG, BID
     Route: 048
  3. LIORESAL [Concomitant]
     Active Substance: BACLOFEN
     Indication: MULTIPLE SCLEROSIS
     Dosage: 10 MG, BID
     Route: 048
     Dates: start: 2013

REACTIONS (2)
  - Human papilloma virus test positive [Unknown]
  - Cervical dysplasia [Recovered/Resolved]

NARRATIVE: CASE EVENT DATE: 201802
